FAERS Safety Report 7794625-3 (Version None)
Quarter: 2011Q4

REPORT INFORMATION
  Report Type: 
  Country: None (occurrence: None)
  Receive Date: 20111004
  Receipt Date: 20110927
  Transmission Date: 20120403
  Serious: Yes (Other)
  Sender: FDA-Public Use
  Company Number: ES-ROCHE-761753

PATIENT
  Sex: Female

DRUGS (5)
  1. TELMISARTAN [Concomitant]
  2. PERTUZUMAB [Suspect]
     Indication: BREAST CANCER
     Route: 042
  3. DOCETAXEL [Suspect]
     Indication: BREAST CANCER
     Dosage: DOSE FORM- IV
     Route: 042
  4. HERCEPTIN [Suspect]
     Indication: BREAST CANCER
     Route: 042
  5. HERCEPTIN [Suspect]
     Dosage: PERMANENTLY DISCONTINUED.
     Route: 042
     Dates: start: 20110114, end: 20110207

REACTIONS (1)
  - LEFT VENTRICULAR DYSFUNCTION [None]
